FAERS Safety Report 6481330-9 (Version None)
Quarter: 2009Q4

REPORT INFORMATION
  Report Type: 
  Country: None (occurrence: None)
  Receive Date: 20091208
  Receipt Date: 20091201
  Transmission Date: 20100525
  Serious: Yes (Disabling)
  Sender: FDA-Public Use
  Company Number: B0582908A

PATIENT
  Age: 67 Year
  Sex: Female
  Weight: 65 kg

DRUGS (7)
  1. AVANDIA [Suspect]
     Dosage: 4MG PER DAY
     Route: 048
     Dates: start: 20070501, end: 20090501
  2. ASPIRIN [Concomitant]
     Dosage: 75MG PER DAY
     Route: 048
  3. BENDROFLUMETHIAZIDE [Concomitant]
     Dosage: 2.5MG PER DAY
     Route: 048
  4. RAMIPRIL [Concomitant]
     Dosage: 10MG PER DAY
     Route: 048
  5. AMITRIPTYLINE [Concomitant]
     Dosage: 10MG PER DAY
     Route: 048
  6. METFORMIN HCL [Concomitant]
     Dosage: 500MG PER DAY
     Route: 048
  7. GLICLAZIDE [Concomitant]
     Dosage: .5 PER DAY
     Route: 048

REACTIONS (4)
  - ASTHENIA [None]
  - EXERCISE TOLERANCE DECREASED [None]
  - MYALGIA [None]
  - QUALITY OF LIFE DECREASED [None]
